FAERS Safety Report 7971159-4 (Version None)
Quarter: 2011Q4

REPORT INFORMATION
  Report Type: 
  Country: None (occurrence: None)
  Receive Date: 20111122
  Receipt Date: 20110727
  Transmission Date: 20120403
  Serious: No
  Sender: FDA-Public Use
  Company Number: PHHY2011US69224

PATIENT

DRUGS (1)
  1. GILENYA [Suspect]
     Indication: MULTIPLE SCLEROSIS
     Dosage: 0.5 MG/DAILY, ORAL
     Route: 048
     Dates: start: 20110726

REACTIONS (5)
  - PARAESTHESIA [None]
  - PYREXIA [None]
  - FEELING COLD [None]
  - PAROSMIA [None]
  - HEART RATE DECREASED [None]
